FAERS Safety Report 8571704-4 (Version None)
Quarter: 2012Q3

REPORT INFORMATION
  Report Type: 
  Country: None (occurrence: None)
  Receive Date: 20120806
  Receipt Date: 20120801
  Transmission Date: 20120928
  Serious: Yes (Hospitalization)
  Sender: FDA-Public Use
  Company Number: PHHY2012IT066039

PATIENT
  Sex: Female

DRUGS (7)
  1. PANTOPRAZOLE SODIUM [Concomitant]
     Route: 048
  2. ALENDRONATE SODIUM [Concomitant]
     Route: 048
  3. VALSARTAN [Suspect]
     Indication: HYPERTENSION
     Dosage: 1 DF, BID (160 MG DAILY)
     Route: 048
     Dates: start: 20120301, end: 20120724
  4. BISOPROLOL FUMARATE [Concomitant]
     Route: 048
  5. PHENOBARBITAL TAB [Concomitant]
     Indication: EPILEPSY
     Dosage: UNK
     Route: 048
  6. DEPONIT [Concomitant]
     Dosage: 20 MG, UNK
     Route: 062
  7. MISOFENAC [Concomitant]
     Indication: ARTHRALGIA
     Route: 048

REACTIONS (4)
  - EPILEPSY [None]
  - HYPERKALAEMIA [None]
  - HYPOTENSION [None]
  - SYNCOPE [None]
